FAERS Safety Report 7007848 (Version 3)
Quarter: 2015Q2

REPORT INFORMATION
  Report Type: Spontaneous
  Country: BR (occurrence: BR)
  Receive Date: 20090601
  Receipt Date: 20150511
  Transmission Date: 20150821
  Serious: Yes (Other)
  Sender: FDA-Public Use
  Company Number: BR-PFIZER INC-2009193415

PATIENT
  Age: 75 Year
  Sex: Male

DRUGS (5)
  1. TRAMAL [Suspect]
     Active Substance: TRAMADOL
     Indication: SPINAL PAIN
  2. TRAMAL [Suspect]
     Active Substance: TRAMADOL
     Indication: BACK PAIN
     Dosage: ONE TABLET (100 M) DAILY
  3. FRONTAL [Suspect]
     Active Substance: ALPRAZOLAM
     Indication: ANXIETY
     Dosage: 0.5 MG, 1X/DAY
  4. FRONTAL [Suspect]
     Active Substance: ALPRAZOLAM
     Indication: INSOMNIA
     Dosage: AT ONE TABLET IN THE MORNING AND ANOTHER ONE AT NIGHT
  5. DIOVAN [Concomitant]
     Active Substance: VALSARTAN
     Indication: HYPERTENSION
     Dosage: UNK
     Dates: start: 2013

REACTIONS (2)
  - Drug dependence [Not Recovered/Not Resolved]
  - Drug ineffective [Not Recovered/Not Resolved]
